FAERS Safety Report 5003821-X (Version None)
Quarter: 2006Q2

REPORT INFORMATION
  Report Type: 
  Country: None (occurrence: None)
  Receive Date: 20060515
  Receipt Date: 20060504
  Transmission Date: 20061013
  Serious: Yes (Death, Other)
  Sender: FDA-Public Use
  Company Number: 2006027235

PATIENT
  Age: 23 Year
  Sex: Male
  Weight: 77.1115 kg

DRUGS (14)
  1. ZELDOX                    (ZIPRASIDONE) [Suspect]
     Indication: AGITATION
     Dosage: 60 MG (20 MG, 3 IN 1 D), ORAL
     Route: 048
     Dates: start: 20060222
  2. METHADONE HCL [Suspect]
     Indication: ILL-DEFINED DISORDER
     Dates: start: 20060201
  3. AMITRIPTYLINE HCL [Suspect]
     Indication: ILL-DEFINED DISORDER
  4. TRILEPTAL [Concomitant]
  5. REMERON [Concomitant]
  6. MORPHINE [Concomitant]
  7. NEURONTIN [Concomitant]
  8. RANITIDINE [Concomitant]
  9. CLONAZEPAM [Concomitant]
  10. ZOLPIDEM TARTRATE [Concomitant]
  11. ACETAMINOPHEN [Concomitant]
  12. ULTRACET [Concomitant]
  13. VIBRAMYCIN [Concomitant]
  14. ZENTEL    (ALBENDAZOLE) [Concomitant]

REACTIONS (8)
  - AGITATION [None]
  - CARDIAC ARREST [None]
  - DRUG INTERACTION [None]
  - ELECTROCARDIOGRAM QT PROLONGED [None]
  - INCREASED BRONCHIAL SECRETION [None]
  - REFUSAL OF TREATMENT BY PATIENT [None]
  - RESPIRATORY FAILURE [None]
  - SHOCK [None]
